FAERS Safety Report 6204786-5 (Version None)
Quarter: 2009Q2

REPORT INFORMATION
  Report Type: 
  Country: None (occurrence: None)
  Receive Date: 20090527
  Receipt Date: 20081211
  Transmission Date: 20091009
  Serious: Yes (Other)
  Sender: FDA-Public Use
  Company Number: AT-PFIZER INC-2008088497

PATIENT

DRUGS (1)
  1. SUTENT [Suspect]

REACTIONS (4)
  - CARDIAC DISORDER [None]
  - CARDIAC ENZYMES INCREASED [None]
  - EJECTION FRACTION ABNORMAL [None]
  - ELECTROCARDIOGRAM CHANGE [None]
